FAERS Safety Report 6046798-0 (Version None)
Quarter: 2009Q1

REPORT INFORMATION
  Report Type: 
  Country: None (occurrence: None)
  Receive Date: 20090122
  Receipt Date: 20090116
  Transmission Date: 20090719
  Serious: Yes (Hospitalization)
  Sender: FDA-Public Use
  Company Number: A0731281A

PATIENT
  Age: 48 Year
  Sex: Male
  Weight: 125 kg

DRUGS (9)
  1. AVANDIA [Suspect]
     Dosage: 4MG PER DAY
     Route: 048
     Dates: start: 19990101, end: 20080601
  2. ACTOS [Concomitant]
     Dates: start: 20030101, end: 20030101
  3. GLUCOPHAGE [Concomitant]
     Dates: start: 19990101
  4. METFORMIN [Concomitant]
     Dates: start: 20030101, end: 20060101
  5. HUMALOG [Concomitant]
     Dates: start: 20050101
  6. LANTUS [Concomitant]
     Dates: start: 20070906, end: 20080201
  7. AMARYL [Concomitant]
     Dates: start: 20020101
  8. GLUCOTROL [Concomitant]
     Dates: start: 20050101
  9. HUMULIN [Concomitant]
     Dates: start: 20030101

REACTIONS (3)
  - INJURY [None]
  - MYOCARDIAL INFARCTION [None]
  - OEDEMA PERIPHERAL [None]
